FAERS Safety Report 13110533 (Version 1)
Quarter: 2017Q1

REPORT INFORMATION
  Report Type: Spontaneous
  Country: BE (occurrence: BE)
  Receive Date: 20170112
  Receipt Date: 20170112
  Transmission Date: 20170428
  Serious: Yes (Other)
  Sender: FDA-Public Use
  Company Number: BE-BAYER-2017-000417

PATIENT
  Age: 21 Year
  Sex: Female
  Weight: 52 kg

DRUGS (3)
  1. PROVIGIL [Suspect]
     Active Substance: MODAFINIL
     Indication: NARCOLEPSY
     Dosage: 100 MG, QID
     Dates: start: 201112
  2. MONTELUKAST [Concomitant]
     Active Substance: MONTELUKAST SODIUM
     Indication: HYPERSENSITIVITY
     Dosage: 10 MG, QD
     Route: 048
     Dates: start: 201112
  3. JAYDESS 13,5 MG [Suspect]
     Active Substance: LEVONORGESTREL
     Indication: CONTRACEPTION
     Dosage: 14 MCG/24HR, CONT
     Route: 015
     Dates: start: 20161003, end: 20161221

REACTIONS (6)
  - Drug interaction [None]
  - Exposure during pregnancy [None]
  - Drug ineffective [None]
  - Pregnancy with contraceptive device [None]
  - Device expulsion [None]
  - Abortion induced [Recovered/Resolved]

NARRATIVE: CASE EVENT DATE: 20161003
